FAERS Safety Report 20041781 (Version 1)
Quarter: 2021Q4

REPORT INFORMATION
  Report Type: Other
  Country: GB (occurrence: GB)
  Receive Date: 20211108
  Receipt Date: 20211108
  Transmission Date: 20220303
  Serious: Yes (Other)
  Sender: FDA-Public Use
  Company Number: None

PATIENT
  Age: 73 Year
  Sex: Female

DRUGS (3)
  1. PREDNISOLONE [Suspect]
     Active Substance: PREDNISOLONE
     Indication: Arthritis
     Dosage: 10 MILLIGRAM
     Route: 065
  2. NUCALA [Suspect]
     Active Substance: MEPOLIZUMAB
     Indication: Product used for unknown indication
     Dosage: 100 MILLIGRAM, EVERY 4 WEEKS
     Route: 058
  3. NUCALA [Suspect]
     Active Substance: MEPOLIZUMAB
     Dosage: UNK (AUTOINJECTOR DEVICE)
     Route: 065

REACTIONS (6)
  - Head discomfort [Unknown]
  - Fatigue [Unknown]
  - Steroid withdrawal syndrome [Unknown]
  - Myalgia [Unknown]
  - Irritability [Unknown]
  - Anger [Unknown]
